FAERS Safety Report 9720974 (Version 6)
Quarter: 2014Q1

REPORT INFORMATION
  Report Type: Report from Study
  Country: DE (occurrence: CL)
  Receive Date: 20131129
  Receipt Date: 20140226
  Transmission Date: 20141002
  Serious: Yes (Life-Threatening, Hospitalization, Other)
  Sender: FDA-Public Use
  Company Number: DE-ACTELION-A-NJ2013-91925

PATIENT
  Age: 56 Year
  Sex: Female

DRUGS (5)
  1. VENTAVIS [Suspect]
     Indication: PULMONARY HYPERTENSION
     Dosage: UNK
     Route: 055
     Dates: start: 20130808
  2. TRACLEER [Concomitant]
     Dosage: UNK
     Route: 048
  3. WARFARIN [Suspect]
     Dosage: UNK
  4. SILDENAFIL [Concomitant]
  5. ESPIRONOLACTONA [Concomitant]

REACTIONS (9)
  - Metrorrhagia [Unknown]
  - Metrorrhagia [Recovered/Resolved]
  - Haematocrit decreased [Unknown]
  - Cervix carcinoma stage II [Unknown]
  - Uterine haemorrhage [Unknown]
  - Fatigue [Unknown]
  - Haematocrit decreased [Unknown]
  - International normalised ratio abnormal [Not Recovered/Not Resolved]
  - Anaemia [Not Recovered/Not Resolved]
